FAERS Safety Report 16301376 (Version 1)
Quarter: 2019Q2

REPORT INFORMATION
  Report Type: Spontaneous
  Country: US (occurrence: US)
  Receive Date: 20190510
  Receipt Date: 20190510
  Transmission Date: 20190711
  Serious: No
  Sender: FDA-Public Use
  Company Number: US-SHIRE-US201915312

PATIENT
  Sex: Female

DRUGS (1)
  1. GATTEX [Suspect]
     Active Substance: TEDUGLUTIDE\WATER
     Indication: SHORT-BOWEL SYNDROME
     Dosage: 0.4 MILLILITER
     Route: 065
     Dates: start: 201806, end: 201811

REACTIONS (4)
  - Injection site mass [Unknown]
  - Flatulence [Unknown]
  - Injection site pain [Unknown]
  - Headache [Unknown]
